FAERS Safety Report 23199102 (Version 1)
Quarter: 2023Q4

REPORT INFORMATION
  Report Type: Spontaneous
  Country: US (occurrence: US)
  Receive Date: 20231117
  Receipt Date: 20231117
  Transmission Date: 20240109
  Serious: No
  Sender: FDA-Public Use
  Company Number: US-Stemline Therapeutics, Inc.-2023ST003565

PATIENT
  Age: 77 Year
  Sex: Female

DRUGS (1)
  1. ORSERDU [Suspect]
     Active Substance: ELACESTRANT
     Indication: Product used for unknown indication
     Dosage: 345MG ONCE DAILY.
     Route: 048
     Dates: start: 20230825

REACTIONS (4)
  - Product dose omission issue [Not Recovered/Not Resolved]
  - Product dose omission in error [Not Recovered/Not Resolved]
  - Product use complaint [Not Recovered/Not Resolved]
  - Nausea [Not Recovered/Not Resolved]
